FAERS Safety Report 7419319-5 (Version None)
Quarter: 2011Q2

REPORT INFORMATION
  Report Type: 
  Country: None (occurrence: None)
  Receive Date: 20110415
  Receipt Date: 20110413
  Transmission Date: 20111010
  Serious: Yes (Death)
  Sender: FDA-Public Use
  Company Number: US-ABBOTT-11P-163-0718647-00

PATIENT
  Sex: Female
  Weight: 81.72 kg

DRUGS (11)
  1. PROVIGIL [Concomitant]
     Indication: NARCOLEPSY
  2. PREMARIN [Concomitant]
     Indication: MENOPAUSE
  3. PROTONIX [Concomitant]
     Indication: GASTROOESOPHAGEAL REFLUX DISEASE
  4. SUDAGEST [Concomitant]
     Indication: RHINITIS ALLERGIC
  5. OXYCODONE [Concomitant]
     Indication: MYALGIA
  6. K-TAB [Suspect]
     Indication: ELECTROLYTE SUBSTITUTION THERAPY
     Dosage: 15 TABS OF 10 MEQ EACH BID
     Route: 048
     Dates: start: 20100101
  7. POTASSIUM CHLORIDE [Suspect]
     Indication: ELECTROLYTE SUBSTITUTION THERAPY
     Dosage: 15 TABS OF 10 MEQ EACH BID
  8. OXYCODONE [Concomitant]
  9. POTASSIUM CHLORIDE [Suspect]
     Indication: ELECTROLYTE SUBSTITUTION THERAPY
     Dosage: 13 TABS OF 10 MEQ EACH BID   13 TABS OF 10 MEQ EACH BID
     Route: 048
  10. SYNTHROID [Concomitant]
     Indication: HYPOTHYROIDISM
     Route: 048
  11. OXYCODONE [Concomitant]
     Indication: MYOSITIS

REACTIONS (3)
  - NAUSEA [None]
  - CARDIO-RESPIRATORY ARREST [None]
  - VOMITING [None]
